FAERS Safety Report 14415033 (Version 1)
Quarter: 2018Q1

REPORT INFORMATION
  Report Type: Spontaneous
  Country: US (occurrence: US)
  Receive Date: 20180118
  Receipt Date: 20180118
  Transmission Date: 20180509
  Serious: Yes (Hospitalization)
  Sender: FDA-Public Use
  Company Number: None

PATIENT
  Age: 86 Year
  Sex: Male
  Weight: 98.29 kg

DRUGS (1)
  1. METFORMIN [Suspect]
     Active Substance: METFORMIN HYDROCHLORIDE
     Indication: DIABETES MELLITUS
     Dates: start: 20131231, end: 20171028

REACTIONS (11)
  - Glycosylated haemoglobin increased [None]
  - Abdominal pain [None]
  - Therapy change [None]
  - Incorrect dose administered [None]
  - Therapy cessation [None]
  - Lactic acidosis [None]
  - Agitation [None]
  - Gastrointestinal wall thickening [None]
  - Tachycardia [None]
  - Sepsis [None]
  - Abdominal tenderness [None]

NARRATIVE: CASE EVENT DATE: 20171028
